FAERS Safety Report 23849496 (Version 1)
Quarter: 2024Q2

REPORT INFORMATION
  Report Type: Spontaneous
  Country: CA (occurrence: CA)
  Receive Date: 20240513
  Receipt Date: 20240513
  Transmission Date: 20240715
  Serious: Yes (Other)
  Sender: FDA-Public Use
  Company Number: CA-PFIZER INC-202300319573

PATIENT
  Age: 58 Year
  Sex: Male

DRUGS (7)
  1. RUXIENCE [Suspect]
     Active Substance: RITUXIMAB-PVVR
     Indication: Systemic scleroderma
     Dosage: 1000 MG, DAY 1 AND DAY 15, DISCONTINUED
     Route: 042
     Dates: start: 20230921
  2. RUXIENCE [Suspect]
     Active Substance: RITUXIMAB-PVVR
     Dosage: 1000 MG, 4 WEEKS AND 5 DAYS (DAY 15) (PRESCRIBED TREATMENT ARE DAY 1 AND DAY 15)
     Route: 042
     Dates: start: 20231024
  3. ACETAMINOPHEN [Concomitant]
     Active Substance: ACETAMINOPHEN
     Indication: Premedication
     Dosage: UNK
     Dates: start: 20231024, end: 20231024
  4. ACTEMRA [Concomitant]
     Active Substance: TOCILIZUMAB
     Dosage: UNK
  5. ACTEMRA [Concomitant]
     Active Substance: TOCILIZUMAB
     Dosage: 1 DF
     Dates: start: 202104
  6. DIPHENHYDRAMINE [Concomitant]
     Active Substance: DIPHENHYDRAMINE
     Indication: Premedication
     Dosage: UNK
     Dates: start: 20231024, end: 20231024
  7. LASIX [Concomitant]
     Active Substance: FUROSEMIDE
     Dosage: 40 MG PER OS 30 MINUTES
     Route: 048

REACTIONS (3)
  - Systemic scleroderma [Unknown]
  - Dyspnoea [Unknown]
  - Off label use [Unknown]

NARRATIVE: CASE EVENT DATE: 20230101
